FAERS Safety Report 23257880 (Version 1)
Quarter: 2023Q4

REPORT INFORMATION
  Report Type: Spontaneous
  Country: US (occurrence: US)
  Receive Date: 20231204
  Receipt Date: 20231204
  Transmission Date: 20240110
  Serious: No
  Sender: FDA-Public Use
  Company Number: US-SANOFI-01857287

PATIENT
  Sex: Female

DRUGS (1)
  1. REZUROCK [Suspect]
     Active Substance: BELUMOSUDIL
     Dosage: 200 MG

REACTIONS (4)
  - Dry mouth [Unknown]
  - Weight increased [Unknown]
  - Heart rate increased [Unknown]
  - Oedema [Unknown]
